FAERS Safety Report 15463743 (Version 2)
Quarter: 2018Q4

REPORT INFORMATION
  Report Type: Spontaneous
  Country: DE (occurrence: DE)
  Receive Date: 20181004
  Receipt Date: 20181017
  Transmission Date: 20190204
  Serious: Yes (Hospitalization, Disabling, Other)
  Sender: FDA-Public Use
  Company Number: DE-AUROBINDO-AUR-APL-2014-10072

PATIENT
  Age: 53 Year
  Sex: Male
  Weight: 94 kg

DRUGS (6)
  1. PRAVASTATIN. [Suspect]
     Active Substance: PRAVASTATIN
     Indication: HYPERCHOLESTEROLAEMIA
     Dosage: 40 MG, ONCE A DAY
     Route: 048
     Dates: start: 201002, end: 201005
  2. COLESTYRAMINE [Concomitant]
     Active Substance: CHOLESTYRAMINE
     Indication: HYPERCHOLESTEROLAEMIA
     Dosage: 60 MILLIGRAM, DAILY
     Route: 048
     Dates: start: 201009, end: 201010
  3. COLESTYRAMINE [Concomitant]
     Active Substance: CHOLESTYRAMINE
     Indication: HYPERCHOLESTEROLAEMIA
     Dosage: UNK
     Route: 065
  4. BENZAFIBRATO [Concomitant]
     Indication: HYPERCHOLESTEROLAEMIA
     Dosage: 400 MG, ONCE A DAY
     Route: 048
     Dates: start: 201006, end: 201009
  5. FLUVASTATIN PROLONGED-RELEASE TABLET [Suspect]
     Active Substance: FLUVASTATIN SODIUM
     Indication: HYPERCHOLESTEROLAEMIA
     Dosage: 20 MILLIGRAM, DAILY
     Route: 048
     Dates: start: 201010, end: 201012
  6. SIMVASTATIN FILM-COATED TABLET [Suspect]
     Active Substance: SIMVASTATIN
     Indication: HYPERCHOLESTEROLAEMIA
     Dosage: 20 MG, ONCE A DAY
     Route: 048
     Dates: start: 198002, end: 201002

REACTIONS (6)
  - Myalgia [Not Recovered/Not Resolved]
  - Neuropathy peripheral [Unknown]
  - Decreased appetite [Unknown]
  - Blood triglycerides increased [Unknown]
  - Blood creatine phosphokinase increased [Not Recovered/Not Resolved]
  - Paraesthesia [Unknown]
